FAERS Safety Report 25957263 (Version 1)
Quarter: 2025Q4

REPORT INFORMATION
  Report Type: Spontaneous
  Country: EU (occurrence: EU)
  Receive Date: 20251024
  Receipt Date: 20251024
  Transmission Date: 20260118
  Serious: Yes (Other)
  Sender: PFIZER
  Company Number: None

PATIENT
  Age: 40 Year
  Sex: Female

DRUGS (3)
  1. VINCRISTINE SULFATE [Suspect]
     Active Substance: VINCRISTINE SULFATE
     Indication: Glioma
     Dosage: UNK
     Route: 042
     Dates: start: 20250722
  2. PROCARBAZINE HYDROCHLORIDE [Suspect]
     Active Substance: PROCARBAZINE HYDROCHLORIDE
     Indication: Glioma
     Dosage: UNK
     Route: 048
     Dates: start: 20250722
  3. LOMUSTINE [Suspect]
     Active Substance: LOMUSTINE
     Indication: Glioma
     Dosage: UNK
     Route: 048
     Dates: start: 20250722

REACTIONS (2)
  - Hepatic cytolysis [Not Recovered/Not Resolved]
  - Condition aggravated [Not Recovered/Not Resolved]

NARRATIVE: CASE EVENT DATE: 20250811
